FAERS Safety Report 11747987 (Version 2)
Quarter: 2015Q4

REPORT INFORMATION
  Report Type: Spontaneous
  Country: US (occurrence: US)
  Receive Date: 20151117
  Receipt Date: 20151201
  Transmission Date: 20160304
  Serious: Yes (Hospitalization)
  Sender: FDA-Public Use
  Company Number: US-GLAXOSMITHKLINE-US2015162948

PATIENT
  Age: 81 Year
  Sex: Female

DRUGS (9)
  1. ICAPS [Concomitant]
     Active Substance: MINERALS\VITAMINS
  2. VITAMIN D [Concomitant]
     Active Substance: CHOLECALCIFEROL
  3. AMLODIPINE [Concomitant]
     Active Substance: AMLODIPINE BESYLATE
  4. CALCIUM [Concomitant]
     Active Substance: CALCIUM
  5. ANORO ELLIPTA [Suspect]
     Active Substance: UMECLIDINIUM BROMIDE\VILANTEROL TRIFENATATE
     Indication: CHRONIC OBSTRUCTIVE PULMONARY DISEASE
     Dosage: 1 PUFF(S), QD
     Route: 055
     Dates: start: 201501, end: 20150920
  6. ADVAIR HFA [Suspect]
     Active Substance: FLUTICASONE PROPIONATE\SALMETEROL XINAFOATE
     Indication: CHRONIC OBSTRUCTIVE PULMONARY DISEASE
     Dosage: 1 PUFF(S), BID
     Route: 055
  7. ADVAIR HFA [Suspect]
     Active Substance: FLUTICASONE PROPIONATE\SALMETEROL XINAFOATE
     Dosage: 100/50 UG
     Dates: start: 201509, end: 201510
  8. ADVAIR HFA [Suspect]
     Active Substance: FLUTICASONE PROPIONATE\SALMETEROL XINAFOATE
     Dosage: 250/50 UG
     Dates: start: 20151011
  9. ATORVASTATIN [Concomitant]
     Active Substance: ATORVASTATIN

REACTIONS (7)
  - Chronic obstructive pulmonary disease [Recovering/Resolving]
  - Oral candidiasis [Recovered/Resolved]
  - Drug ineffective [Recovering/Resolving]
  - Asthenia [Not Recovered/Not Resolved]
  - Dyspepsia [Recovered/Resolved]
  - Fatigue [Not Recovered/Not Resolved]
  - Abdominal discomfort [Recovered/Resolved]

NARRATIVE: CASE EVENT DATE: 20150920
